FAERS Safety Report 10241364 (Version 1)
Quarter: 2014Q2

REPORT INFORMATION
  Report Type: Spontaneous
  Country: CH (occurrence: CH)
  Receive Date: 20140617
  Receipt Date: 20140617
  Transmission Date: 20141212
  Serious: Yes (Hospitalization)
  Sender: FDA-Public Use
  Company Number: CH-TEVA-487368ISR

PATIENT
  Age: 92 Year
  Sex: Female

DRUGS (2)
  1. SOTALOL [Suspect]
     Indication: SUPRAVENTRICULAR TACHYCARDIA
     Dosage: DRUG USED FOR MANY YEARS
     Route: 065
  2. VERAPAMIL [Suspect]
     Indication: SUPRAVENTRICULAR TACHYCARDIA
     Dosage: DRUG USED FOR MANY YEARS
     Route: 065

REACTIONS (4)
  - Supraventricular tachycardia [Unknown]
  - Asthenia [Unknown]
  - Dyspnoea [Unknown]
  - Drug ineffective [Unknown]
